FAERS Safety Report 18579096 (Version 1)
Quarter: 2020Q4

REPORT INFORMATION
  Report Type: Spontaneous
  Country: IR (occurrence: IR)
  Receive Date: 20201204
  Receipt Date: 20201204
  Transmission Date: 20210114
  Serious: Yes (Other)
  Sender: FDA-Public Use
  Company Number: NVSC2020IR318521

PATIENT
  Sex: Male
  Weight: 1.6 kg

DRUGS (2)
  1. HYDROXYCHLOROQUINE SULFATE. [Suspect]
     Active Substance: HYDROXYCHLOROQUINE SULFATE
     Indication: FOETAL EXPOSURE DURING PREGNANCY
     Route: 064
  2. OSELTAMIVIR [Suspect]
     Active Substance: OSELTAMIVIR
     Indication: FOETAL EXPOSURE DURING PREGNANCY
     Route: 064

REACTIONS (2)
  - Premature baby [Unknown]
  - Foetal exposure during pregnancy [Unknown]
